FAERS Safety Report 6395370-1 (Version None)
Quarter: 2009Q4

REPORT INFORMATION
  Report Type: 
  Country: None (occurrence: None)
  Receive Date: 20091006
  Receipt Date: 20090928
  Transmission Date: 20100525
  Serious: Yes (Other)
  Sender: FDA-Public Use
  Company Number: TRP_06461_2009

PATIENT
  Age: 54 Year
  Sex: Female

DRUGS (2)
  1. RIBASPHERE [Suspect]
     Indication: DRUG USE FOR UNKNOWN INDICATION
     Dosage: (DF)
  2. PEGASYS [Suspect]
     Indication: DRUG USE FOR UNKNOWN INDICATION
     Dosage: (DF)

REACTIONS (9)
  - ANAEMIA [None]
  - ASTHENIA [None]
  - CONFUSIONAL STATE [None]
  - DIARRHOEA [None]
  - DYSSTASIA [None]
  - HAEMATOCHEZIA [None]
  - IRRITABLE BOWEL SYNDROME [None]
  - SUICIDAL IDEATION [None]
  - WHITE BLOOD CELL COUNT DECREASED [None]
